FAERS Safety Report 8590719-3 (Version None)
Quarter: 2012Q3

REPORT INFORMATION
  Report Type: 
  Country: None (occurrence: None)
  Receive Date: 20120813
  Receipt Date: 20120809
  Transmission Date: 20120928
  Serious: Yes (Hospitalization, Disabling)
  Sender: FDA-Public Use
  Company Number: US-009507513-1201USA03929

PATIENT

DRUGS (5)
  1. VITAMINS (UNSPECIFIED) [Concomitant]
     Dosage: UNK
     Dates: start: 20020101
  2. CALCIUM (UNSPECIFIED) [Concomitant]
     Dosage: UNK
     Dates: start: 20020101
  3. FOSAMAX [Suspect]
     Indication: OSTEOPENIA
     Dosage: 70 MG, QW
     Route: 048
     Dates: start: 20020101, end: 20060101
  4. VITAMIN D [Concomitant]
     Dosage: UNK
     Dates: start: 20020101
  5. FOSAMAX [Suspect]
     Indication: OSTEOPOROSIS

REACTIONS (13)
  - HYPERLIPIDAEMIA [None]
  - PATELLOFEMORAL PAIN SYNDROME [None]
  - POSTOPERATIVE FEVER [None]
  - FEMUR FRACTURE [None]
  - HAEMATOMA [None]
  - COMPRESSION FRACTURE [None]
  - CHRONIC OBSTRUCTIVE PULMONARY DISEASE [None]
  - FALL [None]
  - VOMITING [None]
  - HAEMORRHAGIC ANAEMIA [None]
  - CHONDROMALACIA [None]
  - ARTHRALGIA [None]
  - ARTHROPATHY [None]
